FAERS Safety Report 8437434-4 (Version None)
Quarter: 2012Q2

REPORT INFORMATION
  Report Type: 
  Country: None (occurrence: None)
  Receive Date: 20120614
  Receipt Date: 20120322
  Transmission Date: 20120825
  Serious: No
  Sender: FDA-Public Use
  Company Number: US-AMGEN-USASP2011066033

PATIENT
  Age: 73 Year
  Sex: Female

DRUGS (3)
  1. PROLIA [Suspect]
     Indication: OSTEOPOROSIS POSTMENOPAUSAL
     Dosage: UNK
     Dates: start: 20110601
  2. SYNTHROID [Concomitant]
     Dosage: UNK
  3. TOPROL-XL [Concomitant]
     Dosage: UNK

REACTIONS (7)
  - IMPAIRED HEALING [None]
  - GINGIVAL PAIN [None]
  - GINGIVAL SWELLING [None]
  - TOOTHACHE [None]
  - ABDOMINAL DISCOMFORT [None]
  - ENDODONTIC PROCEDURE [None]
  - CATARACT [None]
